FAERS Safety Report 7301914-5 (Version None)
Quarter: 2011Q1

REPORT INFORMATION
  Report Type: 
  Country: None (occurrence: None)
  Receive Date: 20110218
  Receipt Date: 20110207
  Transmission Date: 20110831
  Serious: Yes (Hospitalization)
  Sender: FDA-Public Use
  Company Number: DE-SANOFI-AVENTIS-2010SA065938

PATIENT
  Age: 85 Year
  Sex: Female
  Weight: 83.1 kg

DRUGS (8)
  1. CARMEN [Concomitant]
     Dosage: DOSAGE: 1/2-0-1/2
     Route: 065
  2. PHENPROCOUMON [Suspect]
     Indication: ATRIAL FIBRILLATION
     Route: 065
  3. BELOC ZOK [Concomitant]
     Indication: HYPERTENSION
     Dosage: DOSAGE: 1/2-0-1/2
     Route: 048
  4. SIMVASTATIN [Concomitant]
     Indication: HYPERCHOLESTEROLAEMIA
     Route: 048
  5. METHIZOL [Concomitant]
     Indication: HYPERTHYROIDISM
     Route: 048
  6. DABIGATRAN ETEXILATE [Concomitant]
     Indication: ATRIAL FIBRILLATION
     Route: 048
     Dates: start: 20100503
  7. TORSEMIDE [Concomitant]
     Dosage: DOSAGE: 1-1/2-0
     Route: 065
  8. MULTAQ [Suspect]
     Indication: ATRIAL FIBRILLATION
     Route: 048
     Dates: start: 20100503, end: 20100720

REACTIONS (3)
  - TRANSAMINASES INCREASED [None]
  - HEPATITIS TOXIC [None]
  - GENERAL PHYSICAL HEALTH DETERIORATION [None]
